FAERS Safety Report 24213273 (Version 2)
Quarter: 2024Q3

REPORT INFORMATION
  Report Type: Spontaneous
  Country: ES (occurrence: ES)
  Receive Date: 20240815
  Receipt Date: 20240821
  Transmission Date: 20241017
  Serious: Yes (Other)
  Sender: PFIZER
  Company Number: None

PATIENT
  Age: 5 Day
  Sex: Female

DRUGS (1)
  1. VANCOMYCIN HYDROCHLORIDE [Suspect]
     Active Substance: VANCOMYCIN HYDROCHLORIDE
     Indication: Staphylococcal bacteraemia
     Dosage: 45 MG, 2X/DAY (EVERY 12HRS)
     Route: 042
     Dates: start: 202406, end: 202406

REACTIONS (4)
  - Renal impairment neonatal [Recovered/Resolved]
  - Oliguria [Recovered/Resolved]
  - Oedema neonatal [Recovered/Resolved]
  - Vancomycin infusion reaction [Recovered/Resolved]

NARRATIVE: CASE EVENT DATE: 20240601
